FAERS Safety Report 9739791 (Version 4)
Quarter: 2014Q1

REPORT INFORMATION
  Report Type: Spontaneous
  Country: US (occurrence: US)
  Receive Date: 20131209
  Receipt Date: 20140110
  Transmission Date: 20141002
  Serious: Yes (Hospitalization, Other)
  Sender: FDA-Public Use
  Company Number: US-ASTELLAS-2013US011782

PATIENT
  Age: 76 Year
  Sex: Male

DRUGS (1)
  1. XTANDI [Suspect]
     Indication: PROSTATE CANCER METASTATIC
     Dosage: 160 MG, UID/QD
     Route: 048
     Dates: start: 20130823

REACTIONS (5)
  - Ureteric obstruction [Unknown]
  - Malignant neoplasm progression [Unknown]
  - Fall [Unknown]
  - Fluid retention [Not Recovered/Not Resolved]
  - Urinary tract infection bacterial [Recovered/Resolved]
